FAERS Safety Report 5182197-1 (Version None)
Quarter: 2006Q4

REPORT INFORMATION
  Report Type: 
  Country: None (occurrence: None)
  Receive Date: 20061220
  Receipt Date: 20060620
  Transmission Date: 20070319
  Serious: No
  Sender: FDA-Public Use
  Company Number: US-GLAXOSMITHKLINE-A0609680A

PATIENT
  Age: 51 Year
  Sex: Male

DRUGS (3)
  1. COMMIT [Suspect]
     Dates: start: 20060613
  2. NEXIUM [Concomitant]
  3. TOPROL-XL [Concomitant]

REACTIONS (6)
  - DRY MOUTH [None]
  - FOREIGN BODY TRAUMA [None]
  - NAUSEA [None]
  - PALLOR [None]
  - STOMATITIS [None]
  - TONGUE DISCOLOURATION [None]
